FAERS Safety Report 7680916-3 (Version None)
Quarter: 2011Q3

REPORT INFORMATION
  Report Type: 
  Country: None (occurrence: None)
  Receive Date: 20110812
  Receipt Date: 20110811
  Transmission Date: 20111222
  Serious: Yes (Death, Life-Threatening, Other)
  Sender: FDA-Public Use
  Company Number: DE-ABBOTT-11P-062-0845559-00

PATIENT
  Sex: Female

DRUGS (1)
  1. HUMIRA [Suspect]
     Indication: RHEUMATOID ARTHRITIS
     Route: 058
     Dates: start: 20100615, end: 20110404

REACTIONS (6)
  - SEPTIC SHOCK [None]
  - AGRANULOCYTOSIS [None]
  - STREPTOCOCCAL SEPSIS [None]
  - URINARY TRACT INFECTION [None]
  - DRUG INEFFECTIVE [None]
  - MULTI-ORGAN FAILURE [None]
